FAERS Safety Report 7298950-4 (Version None)
Quarter: 2011Q1

REPORT INFORMATION
  Report Type: 
  Country: None (occurrence: None)
  Receive Date: 20110217
  Receipt Date: 20110215
  Transmission Date: 20110831
  Serious: Yes (Death, Hospitalization)
  Sender: FDA-Public Use
  Company Number: ES-PFIZER INC-2011033260

PATIENT
  Age: 86 Year
  Sex: Male

DRUGS (3)
  1. NOCTAMID [Interacting]
     Indication: DELIRIUM
     Dosage: UNK
     Route: 048
     Dates: start: 20090928, end: 20090930
  2. TRANKIMAZIN [Suspect]
     Indication: DELIRIUM
     Dosage: 1 MG, 1X/DAY
     Route: 048
     Dates: start: 20090928, end: 20090930
  3. DORMICUM FOR INJECTION [Interacting]
     Indication: DELIRIUM
     Dosage: 15 MG, 1X/DAY
     Route: 058
     Dates: start: 20090928, end: 20090930

REACTIONS (6)
  - DEPRESSED LEVEL OF CONSCIOUSNESS [None]
  - PNEUMONIA ASPIRATION [None]
  - TOXICITY TO VARIOUS AGENTS [None]
  - DELIRIUM [None]
  - DRUG INTERACTION [None]
  - ACUTE RESPIRATORY FAILURE [None]
